FAERS Safety Report 10962689 (Version 1)
Quarter: 2015Q1

REPORT INFORMATION
  Report Type: Spontaneous
  Country: US (occurrence: US)
  Receive Date: 20150327
  Receipt Date: 20150327
  Transmission Date: 20150721
  Serious: Yes (Death)
  Sender: FDA-Public Use
  Company Number: US-BAYER-2015-049669

PATIENT
  Age: 90 Year
  Sex: Female
  Weight: 47 kg

DRUGS (1)
  1. ALKA-SELTZER HEARTBURN RELIEFCHEWS STRAWBERRY [Suspect]
     Active Substance: CALCIUM CARBONATE
     Indication: DYSPEPSIA
     Dosage: 1 DF, PRN
     Route: 048
     Dates: start: 201406, end: 201407

REACTIONS (2)
  - Death [Fatal]
  - Drug ineffective [Unknown]

NARRATIVE: CASE EVENT DATE: 201406
